FAERS Safety Report 8777454 (Version 1)
Quarter: 2012Q4

REPORT INFORMATION
  Report Type: 
  Country: CO (occurrence: CO)
  Receive Date: 20120911
  Receipt Date: 20120911
  Transmission Date: 20130627
  Serious: Yes (Other)
  Sender: FDA-Public Use
  Company Number: CO-JNJFOC-20120903152

PATIENT
  Age: 47 Year
  Sex: Male

DRUGS (3)
  1. REMICADE [Suspect]
     Indication: ANKYLOSING SPONDYLITIS
     Route: 042
     Dates: start: 20111206, end: 20120727
  2. ALLOPURINOL [Concomitant]
     Route: 065
  3. COLCHICINE [Concomitant]
     Route: 065

REACTIONS (1)
  - Gouty arthritis [Unknown]
